FAERS Safety Report 12522621 (Version 1)
Quarter: 2016Q3

REPORT INFORMATION
  Report Type: Report from Study
  Country: BR (occurrence: BR)
  Receive Date: 20160701
  Receipt Date: 20160701
  Transmission Date: 20161109
  Serious: Yes (Other)
  Sender: FDA-Public Use
  Company Number: PHHY2016BR089770

PATIENT
  Sex: Female
  Weight: 78 kg

DRUGS (1)
  1. ACLASTA [Suspect]
     Active Substance: ZOLEDRONIC ACID
     Indication: OSTEOPOROSIS
     Dosage: 5 MG, UNK
     Route: 042

REACTIONS (11)
  - Speech disorder [Unknown]
  - Pain [Not Recovered/Not Resolved]
  - Vertebral artery stenosis [Unknown]
  - Weight decreased [Unknown]
  - Grip strength decreased [Unknown]
  - Neck pain [Unknown]
  - Hypoaesthesia [Unknown]
  - Arthralgia [Unknown]
  - Pain in extremity [Unknown]
  - Hypersensitivity [Unknown]
  - Vomiting [Unknown]
